FAERS Safety Report 25511887 (Version 1)
Quarter: 2025Q3

REPORT INFORMATION
  Report Type: Spontaneous
  Country: US (occurrence: US)
  Receive Date: 20250703
  Receipt Date: 20250703
  Transmission Date: 20251021
  Serious: No
  Sender: RADIUS PHARM
  Company Number: US-RADIUS HEALTH INC.-2024US007357

PATIENT
  Sex: Female

DRUGS (1)
  1. TYMLOS [Suspect]
     Active Substance: ABALOPARATIDE
     Indication: Osteoporosis
     Dates: start: 202305

REACTIONS (7)
  - Injection site pain [Unknown]
  - Abdominal distension [Unknown]
  - Abdominal pain upper [Unknown]
  - Headache [Unknown]
  - Palpitations [Unknown]
  - Flatulence [Not Recovered/Not Resolved]
  - Blood phosphorus increased [Unknown]

NARRATIVE: CASE EVENT DATE: 20230501
